FAERS Safety Report 7827790-X (Version None)
Quarter: 2011Q4

REPORT INFORMATION
  Report Type: 
  Country: None (occurrence: None)
  Receive Date: 20111020
  Receipt Date: 20110511
  Transmission Date: 20120403
  Serious: Yes (Hospitalization)
  Sender: FDA-Public Use
  Company Number: CA-CELGENEUS-028-C5013-11051435

PATIENT
  Sex: Female
  Weight: 64 kg

DRUGS (26)
  1. MACROBID [Concomitant]
     Route: 065
     Dates: start: 20110401
  2. LEVAQUIN [Concomitant]
     Indication: PROPHYLAXIS
     Dosage: 500 MILLIGRAM
     Route: 048
  3. HYDROMORPHONE HCL [Concomitant]
     Indication: PAIN MANAGEMENT
     Dosage: 3 MILLIGRAM
     Route: 048
     Dates: start: 20090630
  4. SEPTRA DS [Concomitant]
     Indication: INFECTION PROPHYLAXIS
     Dosage: 1 TABLET
     Route: 048
     Dates: start: 20100504
  5. QUININE SULFATE [Concomitant]
     Dosage: 300 MILLIGRAM
     Route: 048
     Dates: start: 20091020
  6. NEUPOGEN [Concomitant]
     Indication: NEUTROPENIA
     Dosage: 300 MILLIGRAM
     Route: 058
     Dates: start: 20100727
  7. REVLIMID [Suspect]
     Indication: MULTIPLE MYELOMA
     Dosage: 15 MILLIGRAM
     Route: 048
     Dates: start: 20090630, end: 20110426
  8. PREDNISONE [Suspect]
     Indication: MULTIPLE MYELOMA
     Dosage: 50 MILLIGRAM
     Route: 065
     Dates: start: 20090630, end: 20110426
  9. DECADRON [Concomitant]
     Dosage: 40 MILLIGRAM
     Route: 048
  10. RANITIDINE [Concomitant]
     Dosage: 150 MILLIGRAM
     Route: 048
     Dates: start: 20090728
  11. TYLENOL W/ CODEINE NO. 3 [Concomitant]
     Indication: PAIN MANAGEMENT
     Dosage: 30 MILLIGRAM
     Route: 048
     Dates: start: 20080401
  12. FENTANYL CITRATE [Concomitant]
     Indication: PAIN MANAGEMENT
     Dosage: 2 MILLIGRAM
     Route: 065
     Dates: start: 20080101
  13. IPRATROPIUM BROMIDE [Concomitant]
     Dosage: 0.3% CC PUFF FS
     Route: 045
     Dates: start: 20100101
  14. ANTIBIOTICS [Concomitant]
     Route: 065
     Dates: start: 20110401
  15. TIMOLOL MALEATE [Concomitant]
     Dosage: 1 DROPS
     Route: 047
  16. ASPIRIN [Concomitant]
     Indication: THROMBOSIS PROPHYLAXIS
     Dosage: 81 MILLIGRAM
     Route: 048
     Dates: start: 20090101, end: 20110426
  17. AMITRIPTYLINE HCL [Concomitant]
     Indication: INSOMNIA
     Dosage: 10 MILLIGRAM
     Route: 048
     Dates: start: 20090630
  18. KYTRIL [Concomitant]
     Indication: NAUSEA
     Dosage: 1 MILLIGRAM
     Route: 048
     Dates: start: 20090825, end: 20110426
  19. CYCLOPHOSPHAMIDE [Suspect]
     Indication: MULTIPLE MYELOMA
     Dosage: 100 MILLIGRAM/SQ. METER
     Route: 065
     Dates: start: 20090630, end: 20110426
  20. CRESTOR [Concomitant]
     Dosage: 5 MILLIGRAM
     Route: 048
     Dates: start: 20090101
  21. VITAMIN B-12 [Concomitant]
     Indication: VITAMIN SUPPLEMENTATION
     Dosage: 1000 MILLIGRAM
     Route: 048
     Dates: start: 20080101
  22. SALBUTOMOL SULPHATE [Concomitant]
     Dosage: PUFF FS
     Route: 055
     Dates: start: 20100101
  23. LATANOPROST [Concomitant]
     Indication: GLAUCOMA
     Dosage: EACH EYE
     Route: 047
     Dates: start: 20100101
  24. RANITIDINE [Concomitant]
  25. VITAMIN D [Concomitant]
     Indication: VITAMIN SUPPLEMENTATION
     Dosage: 1000 IU
     Route: 048
     Dates: start: 20080101
  26. CENTRUM SELECT 50+ [Concomitant]
     Indication: VITAMIN SUPPLEMENTATION
     Dosage: 1 TABLET
     Route: 048
     Dates: start: 20080101

REACTIONS (1)
  - CYSTITIS HAEMORRHAGIC [None]
